FAERS Safety Report 19899179 (Version 1)
Quarter: 2021Q3

REPORT INFORMATION
  Report Type: Spontaneous
  Country: US (occurrence: US)
  Receive Date: 20210929
  Receipt Date: 20210929
  Transmission Date: 20211014
  Serious: Yes (Other)
  Sender: FDA-Public Use
  Company Number: US-BRISTOL-MYERS SQUIBB COMPANY-BMS-2021-096948

PATIENT
  Age: 59 Year
  Sex: Female

DRUGS (6)
  1. IPILIMUMAB [Suspect]
     Active Substance: IPILIMUMAB
     Dosage: THIRD CYCLE
     Route: 065
  2. IPILIMUMAB [Suspect]
     Active Substance: IPILIMUMAB
     Dosage: SECOND CYCLE
     Route: 065
  3. NIVOLUMAB [Suspect]
     Active Substance: NIVOLUMAB
     Dosage: SECOND CYCLE
     Route: 005
  4. NIVOLUMAB [Suspect]
     Active Substance: NIVOLUMAB
     Dosage: THIRD CYCLE
     Route: 005
  5. NIVOLUMAB [Suspect]
     Active Substance: NIVOLUMAB
     Indication: METASTATIC MALIGNANT MELANOMA
     Dosage: FIRST CYCLE
     Route: 005
  6. IPILIMUMAB [Suspect]
     Active Substance: IPILIMUMAB
     Indication: METASTATIC MALIGNANT MELANOMA
     Dosage: FIRST CYCLE
     Route: 065

REACTIONS (8)
  - Vitiligo [Unknown]
  - Immune-mediated uveitis [Unknown]
  - Diabetic ketoacidosis [Unknown]
  - Immune-mediated hepatitis [Unknown]
  - Arthritis [Unknown]
  - Secondary adrenocortical insufficiency [Unknown]
  - Immune-mediated thyroiditis [Unknown]
  - Type 1 diabetes mellitus [Unknown]
